FAERS Safety Report 6673791-7 (Version None)
Quarter: 2010Q2

REPORT INFORMATION
  Report Type: 
  Country: None (occurrence: None)
  Receive Date: 20100407
  Receipt Date: 20100328
  Transmission Date: 20101027
  Serious: Yes (Hospitalization, Other)
  Sender: FDA-Public Use
  Company Number: CL-79-2010

PATIENT
  Age: 54 Year
  Sex: Female

DRUGS (2)
  1. CIPROFLOXACIN [Suspect]
     Indication: PYELONEPHRITIS
  2. LEVOFLOXACIN [Suspect]
     Indication: URINARY TRACT INFECTION

REACTIONS (1)
  - DRUG ERUPTION [None]
